FAERS Safety Report 7359193-9 (Version None)
Quarter: 2011Q1

REPORT INFORMATION
  Report Type: 
  Country: None (occurrence: None)
  Receive Date: 20110317
  Receipt Date: 20110310
  Transmission Date: 20110831
  Serious: Yes (Hospitalization, Other)
  Sender: FDA-Public Use
  Company Number: IT-ELI_LILLY_AND_COMPANY-IT201103003547

PATIENT
  Sex: Female

DRUGS (3)
  1. BYETTA [Suspect]
     Indication: DIABETES MELLITUS
     Dosage: 10 UG, UNK
     Route: 058
     Dates: start: 20091201, end: 20101201
  2. GLYBURIDE AND METFORMIN HCL [Concomitant]
     Dosage: 2 D/F, UNK
  3. METFORAL [Concomitant]
     Dosage: 500 MG, UNK

REACTIONS (2)
  - IRON DEFICIENCY ANAEMIA [None]
  - RENAL FAILURE [None]
